FAERS Safety Report 5969380-X (Version None)
Quarter: 2008Q4

REPORT INFORMATION
  Report Type: 
  Country: None (occurrence: None)
  Receive Date: 20081126
  Receipt Date: 20081120
  Transmission Date: 20090506
  Serious: Yes (Hospitalization)
  Sender: FDA-Public Use
  Company Number: KP-WATSON-2008-06904

PATIENT
  Age: 42 Year
  Sex: Male

DRUGS (5)
  1. CHLORPROMAZINE HCL [Suspect]
     Indication: SCHIZOPHRENIA
     Dosage: 600 MG, DAILY
     Route: 048
  2. RIFAMPIN [Suspect]
     Indication: TUBERCULOSIS
     Dosage: 600 MG, UNK
     Route: 048
  3. ISONIAZID [Concomitant]
     Indication: TUBERCULOSIS
     Dosage: 400 MG, UNK
     Route: 065
  4. PYRAZINAMIDE [Concomitant]
     Indication: TUBERCULOSIS
     Dosage: 1500 MG, DAILY
     Route: 048
  5. BENZTROPEINE [Concomitant]
     Indication: DRUG USE FOR UNKNOWN INDICATION
     Dosage: 1 MG, DAILY
     Route: 065

REACTIONS (2)
  - DRUG INTERACTION [None]
  - NEUROLEPTIC MALIGNANT SYNDROME [None]
